FAERS Safety Report 4714477-5 (Version None)
Quarter: 2005Q3

REPORT INFORMATION
  Report Type: 
  Country: None (occurrence: None)
  Receive Date: 20050714
  Receipt Date: 20050701
  Transmission Date: 20060218
  Serious: Yes (Death)
  Sender: FDA-Public Use
  Company Number: JP-BRISTOL-MYERS SQUIBB COMPANY-13025168

PATIENT
  Age: 90 Year
  Sex: Female

DRUGS (2)
  1. AZACTAM [Suspect]
     Indication: PNEUMONIA
     Dates: start: 20050401, end: 20050411
  2. PRODIF [Suspect]
     Dates: start: 20050324, end: 20050411

REACTIONS (1)
  - MULTI-ORGAN FAILURE [None]
